FAERS Safety Report 6282472-3 (Version None)
Quarter: 2009Q3

REPORT INFORMATION
  Report Type: 
  Country: None (occurrence: None)
  Receive Date: 20090724
  Receipt Date: 20090716
  Transmission Date: 20100115
  Serious: Yes (Hospitalization, Disabling)
  Sender: FDA-Public Use
  Company Number: US-ELI_LILLY_AND_COMPANY-US200906001353

PATIENT
  Sex: Female
  Weight: 85.034 kg

DRUGS (9)
  1. BYETTA [Suspect]
     Dosage: 5 UG, 2/D
     Route: 058
     Dates: start: 20081121
  2. BYETTA [Suspect]
     Dosage: 10 UG, 2/D
     Route: 058
     Dates: end: 20090416
  3. BYETTA [Suspect]
     Dosage: 5 UG, 2/D
     Route: 058
     Dates: start: 20090101, end: 20090401
  4. METFORMIN HCL [Concomitant]
  5. CIMETIDINE [Concomitant]
     Dates: end: 20090401
  6. CLONAZEPAM [Concomitant]
     Dates: end: 20090401
  7. FENOFIBRATE [Concomitant]
     Indication: BLOOD TRIGLYCERIDES INCREASED
  8. CYMBALTA [Concomitant]
  9. SEROQUEL [Concomitant]

REACTIONS (6)
  - DIARRHOEA [None]
  - IMPAIRED GASTRIC EMPTYING [None]
  - MENTAL DISORDER [None]
  - MOOD ALTERED [None]
  - PANCREATITIS [None]
  - WEIGHT DECREASED [None]
